FAERS Safety Report 10090550 (Version 2)
Quarter: 2014Q2

REPORT INFORMATION
  Report Type: Spontaneous
  Country: US (occurrence: None)
  Receive Date: 20140417
  Receipt Date: 20140502
  Transmission Date: 20141212
  Serious: Yes (Hospitalization)
  Sender: FDA-Public Use
  Company Number: UTC-047063

PATIENT
  Age: 44 Year
  Sex: Female
  Weight: 68.94 kg

DRUGS (4)
  1. REMODULIN [Suspect]
     Indication: COR PULMONALE CHRONIC
     Dosage: 27.36 UG/KG (0.019 UG/KG,1 IN 1 MIN),INTRAVENOUS DRIP
     Route: 041
  2. TRACLEER (BOSENTAN) (UNKNOWN) [Concomitant]
  3. REVATIO (SILDENAFIL CITRATE) (UNKNOWN) [Concomitant]
  4. COUMADIN (WARFARIN SODIUM) (UNKNOWN) [Concomitant]

REACTIONS (3)
  - Intestinal obstruction [None]
  - Tracheostomy tube removal [None]
  - Abdominal pain upper [None]
